FAERS Safety Report 11506036 (Version 1)
Quarter: 2015Q3

REPORT INFORMATION
  Report Type: Spontaneous
  Country: US (occurrence: None)
  Receive Date: 20150914
  Receipt Date: 20150914
  Transmission Date: 20151125
  Serious: No
  Sender: FDA-Public Use
  Company Number: None

PATIENT
  Age: 52 Year
  Sex: Female

DRUGS (1)
  1. PLEGRIDY [Suspect]
     Active Substance: PEGINTERFERON BETA-1A
     Indication: MULTIPLE SCLEROSIS
     Dosage: 125 MCG?Q14DAYS?SC
     Route: 058
     Dates: start: 20150623, end: 20150830

REACTIONS (2)
  - Musculoskeletal stiffness [None]
  - Muscle spasms [None]

NARRATIVE: CASE EVENT DATE: 20150701
